FAERS Safety Report 22589171 (Version 1)
Quarter: 2023Q2

REPORT INFORMATION
  Report Type: Spontaneous
  Country: US (occurrence: None)
  Receive Date: 20230609
  Receipt Date: 20230609
  Transmission Date: 20230722
  Serious: No
  Sender: FDA-Public Use
  Company Number: None

PATIENT
  Sex: Female

DRUGS (15)
  1. CAPECITABINE [Suspect]
     Active Substance: CAPECITABINE
     Indication: Breast cancer female
     Dosage: 3T BID PO 14D ON/7D OFF
     Route: 048
  2. DEXAMETHASONE [Concomitant]
     Active Substance: DEXAMETHASONE
  3. CARVEDILOL [Concomitant]
     Active Substance: CARVEDILOL
  4. LORAZEPAM [Concomitant]
     Active Substance: LORAZEPAM
  5. DULOXETINE [Concomitant]
     Active Substance: DULOXETINE
  6. ASPIRIN [Concomitant]
     Active Substance: ASPIRIN
  7. FAMOTIDINE [Concomitant]
     Active Substance: FAMOTIDINE
  8. HYDROCODONE [Concomitant]
     Active Substance: HYDROCODONE
  9. ABILIFY [Concomitant]
     Active Substance: ARIPIPRAZOLE
  10. TRAZODONE [Concomitant]
     Active Substance: TRAZODONE HYDROCHLORIDE
  11. LIDOCAINE [Concomitant]
     Active Substance: LIDOCAINE
  12. ONDANSETRON [Concomitant]
     Active Substance: ONDANSETRON
  13. PROCHLOPERAZINE [Concomitant]
  14. ATROPINE [Concomitant]
     Active Substance: ATROPINE
  15. AMMONIUM LACTATE [Concomitant]
     Active Substance: AMMONIUM LACTATE

REACTIONS (1)
  - Disease progression [None]
